FAERS Safety Report 14970057 (Version 1)
Quarter: 2018Q2

REPORT INFORMATION
  Report Type: Spontaneous
  Country: US (occurrence: US)
  Receive Date: 20180530
  Receipt Date: 20180530
  Transmission Date: 20180711
  Serious: No
  Sender: FDA-Public Use
  Company Number: US-KADMON PHARMACEUTICALS, LLC-KAD201708-000897

PATIENT
  Age: 61 Year
  Sex: Male

DRUGS (6)
  1. PEGASYS [Suspect]
     Active Substance: PEGINTERFERON ALFA-2A
     Indication: HEPATITIS C
     Dosage: INJECTION
     Dates: start: 20110802
  2. ATENOLOL. [Concomitant]
     Active Substance: ATENOLOL
  3. RIBASPHERE [Suspect]
     Active Substance: RIBAVIRIN
     Indication: HEPATITIS C
     Dates: start: 20110802
  4. PROTEASE INHIBITOR [Suspect]
     Active Substance: UNSPECIFIED INGREDIENT
     Indication: HEPATITIS C
     Dosage: CAPSULE
     Dates: start: 20110802
  5. LUNESTA [Concomitant]
     Active Substance: ESZOPICLONE
  6. LISINOPRIL. [Concomitant]
     Active Substance: LISINOPRIL

REACTIONS (3)
  - Confusional state [Not Recovered/Not Resolved]
  - Drug effect incomplete [Unknown]
  - Insomnia [Not Recovered/Not Resolved]
